FAERS Safety Report 6445509-4 (Version None)
Quarter: 2009Q4

REPORT INFORMATION
  Report Type: 
  Country: None (occurrence: None)
  Receive Date: 20091118
  Receipt Date: 20091105
  Transmission Date: 20100525
  Serious: Yes (Death)
  Sender: FDA-Public Use
  Company Number: BR-GENENTECH-294289

PATIENT
  Sex: Female

DRUGS (6)
  1. PERTUZUMAB [Suspect]
     Indication: BREAST CANCER
     Dosage: 840 MG, UNK
     Route: 042
     Dates: start: 20090827
  2. HERCEPTIN [Suspect]
     Indication: BREAST CANCER
     Dosage: 8 MG/KG, UNK
     Route: 042
     Dates: start: 20090827
  3. DOCETAXEL [Suspect]
     Indication: BREAST CANCER
     Dosage: 169 MG, Q3W
     Route: 042
     Dates: start: 20090827
  4. ISORDIL [Suspect]
     Indication: DRUG USE FOR UNKNOWN INDICATION
     Dosage: 5 MG, UNK
     Route: 065
     Dates: start: 20000101
  5. ENALAPRIL MALEATE [Suspect]
     Indication: DRUG USE FOR UNKNOWN INDICATION
     Dosage: 20 MG, UNK
     Route: 065
     Dates: start: 19850101
  6. IPRATROPIUM BROMIDE [Suspect]
     Indication: DRUG USE FOR UNKNOWN INDICATION
     Dosage: 21 UNK, UNK
     Route: 065
     Dates: start: 20000101

REACTIONS (1)
  - HEPATITIS [None]
